APPROVED DRUG PRODUCT: CEFADYL
Active Ingredient: CEPHAPIRIN SODIUM
Strength: EQ 500MG BASE/VIAL
Dosage Form/Route: INJECTABLE;INJECTION
Application: A062961 | Product #001
Applicant: APOTHECON INC DIV BRISTOL MYERS SQUIBB
Approved: Sep 20, 1988 | RLD: No | RS: No | Type: DISCN